FAERS Safety Report 7576032-1 (Version None)
Quarter: 2011Q2

REPORT INFORMATION
  Report Type: 
  Country: None (occurrence: None)
  Receive Date: 20110628
  Receipt Date: 20110311
  Transmission Date: 20111010
  Serious: Yes (Hospitalization, Other)
  Sender: FDA-Public Use
  Company Number: US-BAYER-201041356NA

PATIENT
  Age: 48 Year
  Sex: Female
  Weight: 58 kg

DRUGS (5)
  1. CATAFLAM [Concomitant]
     Dosage: 50 MG, TID
     Route: 048
  2. VALTREX [Concomitant]
     Indication: INFECTION
     Dosage: 1 G, UNK
     Dates: start: 20000101, end: 20060101
  3. GABAPENTIN [Concomitant]
     Dosage: 300 MG, UNK
     Dates: start: 20061101
  4. YASMIN [Suspect]
     Indication: MENOPAUSAL SYMPTOMS
     Dosage: UNK
     Route: 048
     Dates: start: 20060614, end: 20061116
  5. ASPIRIN [Concomitant]
     Dosage: 81 MG, QD

REACTIONS (2)
  - INJURY [None]
  - DEEP VEIN THROMBOSIS [None]
